FAERS Safety Report 5366499-1 (Version None)
Quarter: 2007Q2

REPORT INFORMATION
  Report Type: 
  Country: None (occurrence: None)
  Receive Date: 20070622
  Receipt Date: 20070612
  Transmission Date: 20071010
  Serious: Yes (Disabling, Congenital Anomaly)
  Sender: FDA-Public Use
  Company Number: FR-JNJFOC-20070603228

PATIENT
  Sex: Male
  Weight: 1.6 kg

DRUGS (5)
  1. EPITOMAX [Suspect]
     Indication: DRUG EXPOSURE DURING PREGNANCY
  2. DI-HYDAN [Suspect]
     Indication: DRUG EXPOSURE DURING PREGNANCY
  3. RIVOTRIL [Suspect]
     Indication: DRUG EXPOSURE DURING PREGNANCY
  4. CARBAMAZEPINE [Suspect]
     Indication: DRUG EXPOSURE DURING PREGNANCY
  5. DEPAKENE [Concomitant]
     Indication: DRUG EXPOSURE DURING PREGNANCY

REACTIONS (5)
  - CLEFT LIP [None]
  - FOETAL GROWTH RETARDATION [None]
  - MICROGNATHIA [None]
  - PIERRE ROBIN SYNDROME [None]
  - PREMATURE BABY [None]
